FAERS Safety Report 4300421-1 (Version None)
Quarter: 2004Q1

REPORT INFORMATION
  Report Type: 
  Country: None (occurrence: None)
  Receive Date: 20040218
  Receipt Date: 20040218
  Transmission Date: 20041129
  Serious: Yes (Hospitalization)
  Sender: FDA-Public Use
  Company Number: None

PATIENT
  Age: 56 Year
  Sex: Male
  Weight: 92.9 kg

DRUGS (7)
  1. WARFARIN [Suspect]
     Indication: DEEP VEIN THROMBOSIS
     Dosage: QD
  2. BACTRIM [Suspect]
     Indication: INFECTION
     Dosage: 1 TAB BID X 7 DAYS
  3. FOLIC ACID [Concomitant]
  4. HYDROCHLOROTHIAZIDE [Concomitant]
  5. TRAZODONE HCL [Concomitant]
  6. VALSARTAN [Concomitant]
  7. VENLOFAXINE [Concomitant]

REACTIONS (5)
  - DEEP VEIN THROMBOSIS [None]
  - EROSIVE OESOPHAGITIS [None]
  - INTERNATIONAL NORMALISED RATIO INCREASED [None]
  - OESOPHAGITIS [None]
  - RECTAL HAEMORRHAGE [None]
